FAERS Safety Report 17602780 (Version 3)
Quarter: 2020Q2

REPORT INFORMATION
  Report Type: Report from Study
  Country: None (occurrence: CO)
  Receive Date: 20200330
  Receipt Date: 20200513
  Transmission Date: 20200713
  Serious: Yes (Other)
  Sender: FDA-Public Use
  Company Number: CO-ABBVIE-20K-036-3343478-00

PATIENT
  Age: 61 Year
  Sex: Female
  Weight: 78 kg

DRUGS (4)
  1. NAPROXEN. [Concomitant]
     Active Substance: NAPROXEN
     Indication: PAIN
     Route: 048
     Dates: start: 20200324
  2. CEPHALEXIN. [Concomitant]
     Active Substance: CEPHALEXIN
     Indication: BRONCHITIS
     Route: 048
     Dates: start: 20200319, end: 20200323
  3. HUMIRA [Suspect]
     Active Substance: ADALIMUMAB
     Indication: COLITIS ULCERATIVE
     Route: 058
     Dates: end: 20200314
  4. HUMIRA [Suspect]
     Active Substance: ADALIMUMAB
     Indication: COLITIS ULCERATIVE
     Route: 058
     Dates: start: 20140722

REACTIONS (11)
  - Back pain [Recovering/Resolving]
  - Hypokinesia [Recovering/Resolving]
  - Hypoaesthesia [Recovering/Resolving]
  - Joint swelling [Recovering/Resolving]
  - Pain in extremity [Recovering/Resolving]
  - Mobility decreased [Recovering/Resolving]
  - Inflammation [Recovering/Resolving]
  - Arthritis [Not Recovered/Not Resolved]
  - Bronchitis [Recovering/Resolving]
  - Colitis ulcerative [Recovering/Resolving]
  - Arthralgia [Not Recovered/Not Resolved]

NARRATIVE: CASE EVENT DATE: 202003
